FAERS Safety Report 6810817-1 (Version None)
Quarter: 2010Q2

REPORT INFORMATION
  Report Type: 
  Country: None (occurrence: None)
  Receive Date: 20100630
  Receipt Date: 20080521
  Transmission Date: 20101027
  Serious: No
  Sender: FDA-Public Use
  Company Number: US-PFIZER INC-2008028163

PATIENT
  Sex: Female

DRUGS (4)
  1. ESTRING [Suspect]
     Dates: start: 20061201
  2. AZITHROMYCIN [Concomitant]
  3. GABAPENTIN [Concomitant]
  4. CODEINE SULFATE [Concomitant]

REACTIONS (2)
  - BURNING SENSATION [None]
  - VULVOVAGINAL DISCOMFORT [None]
